FAERS Safety Report 5788287-4 (Version None)
Quarter: 2008Q2

REPORT INFORMATION
  Report Type: 
  Country: None (occurrence: None)
  Receive Date: 20080625
  Receipt Date: 20080617
  Transmission Date: 20081010
  Serious: Yes (Other)
  Sender: FDA-Public Use
  Company Number: US-MERCK-0806USA02224

PATIENT
  Age: 28 Year
  Sex: Female
  Weight: 116 kg

DRUGS (9)
  1. JANUVIA [Suspect]
     Indication: TYPE 2 DIABETES MELLITUS
     Route: 048
     Dates: start: 20080508
  2. DEPAKOTE [Concomitant]
     Route: 048
  3. ALBUTEROL [Concomitant]
     Route: 065
  4. LEVOXYL [Concomitant]
     Route: 048
  5. LUPRON [Concomitant]
     Route: 065
  6. ZYRTEC [Concomitant]
     Route: 048
  7. LIPITOR [Concomitant]
     Route: 048
     Dates: start: 20080114
  8. NIASPAN [Concomitant]
     Route: 048
  9. VITAMINS (UNSPECIFIED) [Concomitant]
     Route: 065

REACTIONS (2)
  - UTERINE HAEMORRHAGE [None]
  - WRONG TECHNIQUE IN DRUG USAGE PROCESS [None]
